FAERS Safety Report 9448344 (Version 1)
Quarter: 2013Q3

REPORT INFORMATION
  Report Type: Report from Study
  Country: LB (occurrence: LB)
  Receive Date: 20130808
  Receipt Date: 20130808
  Transmission Date: 20140515
  Serious: Yes (Death)
  Sender: FDA-Public Use
  Company Number: LB-SANOFI-AVENTIS-2013SA077389

PATIENT
  Age: 58 Year
  Sex: Female

DRUGS (2)
  1. LANTUS SOLOSTAR [Suspect]
     Indication: DIABETES MELLITUS
     Dosage: DOSE:25 UNIT(S)
     Route: 058
     Dates: start: 2013, end: 2013
  2. SOLOSTAR [Concomitant]
     Indication: DEVICE THERAPY
     Dates: start: 2013, end: 2013

REACTIONS (1)
  - Embolism [Fatal]
